FAERS Safety Report 8068174-1 (Version None)
Quarter: 2012Q1

REPORT INFORMATION
  Report Type: 
  Country: None (occurrence: None)
  Receive Date: 20120124
  Receipt Date: 20110921
  Transmission Date: 20120608
  Serious: No
  Sender: FDA-Public Use
  Company Number: US-AMGEN-USASP2011028747

PATIENT
  Age: 80 Year
  Sex: Female

DRUGS (6)
  1. ARICEPT [Concomitant]
  2. METROGEL [Concomitant]
  3. OXYBUTYNIN [Concomitant]
  4. PROLIA [Suspect]
     Indication: OSTEOPOROSIS POSTMENOPAUSAL
     Dosage: 60 MG, Q6MO
     Dates: start: 20110401
  5. VENLAFAXINE [Concomitant]
  6. NAMENDA [Concomitant]

REACTIONS (7)
  - MUSCLE TIGHTNESS [None]
  - PRURITUS [None]
  - PAIN IN EXTREMITY [None]
  - ERYTHEMA [None]
  - ARTHROPATHY [None]
  - POOR PERIPHERAL CIRCULATION [None]
  - OEDEMA PERIPHERAL [None]
